FAERS Safety Report 11146745 (Version 1)
Quarter: 2015Q2

REPORT INFORMATION
  Report Type: Spontaneous
  Country: IT (occurrence: None)
  Receive Date: 20150526
  Receipt Date: 20150526
  Transmission Date: 20150821
  Serious: Yes (Hospitalization, Other)
  Sender: FDA-Public Use
  Company Number: IT-ZYDUS-008126

PATIENT
  Age: 57 Year
  Sex: Male

DRUGS (2)
  1. AMIODARONE (AMIODARONE) [Suspect]
     Active Substance: AMIODARONE
     Indication: ATRIAL FIBRILLATION
     Dates: start: 201110
  2. EVEROLIMUS (EVEROLIMUS) [Suspect]
     Active Substance: EVEROLIMUS
     Indication: CHRONIC ALLOGRAFT NEPHROPATHY
     Dates: start: 2008

REACTIONS (6)
  - Malaise [None]
  - Pyrexia [None]
  - Potentiating drug interaction [None]
  - Renal impairment [None]
  - Pulmonary toxicity [None]
  - Interstitial lung disease [None]

NARRATIVE: CASE EVENT DATE: 201112
